FAERS Safety Report 22076719 (Version 1)
Quarter: 2023Q1

REPORT INFORMATION
  Report Type: Report from Study
  Country: CA (occurrence: CA)
  Receive Date: 20230309
  Receipt Date: 20230309
  Transmission Date: 20230418
  Serious: Yes (Other)
  Sender: FDA-Public Use
  Company Number: CA-JNJFOC-20221027573

PATIENT
  Age: 33 Year
  Sex: Female
  Weight: 108 kg

DRUGS (2)
  1. REMICADE [Suspect]
     Active Substance: INFLIXIMAB
     Indication: Takayasu^s arteritis
     Route: 042
     Dates: start: 20190228
  2. REMICADE [Suspect]
     Active Substance: INFLIXIMAB
     Dosage: LAST REMICADE INFUSION ON 02-FEB-2023
     Route: 042

REACTIONS (5)
  - Syncope [Recovered/Resolved]
  - Oral herpes [Unknown]
  - Inappropriate schedule of product administration [Unknown]
  - Fatigue [Unknown]
  - Off label use [Unknown]

NARRATIVE: CASE EVENT DATE: 20190228
